FAERS Safety Report 4681688-7 (Version None)
Quarter: 2005Q2

REPORT INFORMATION
  Report Type: 
  Country: None (occurrence: None)
  Receive Date: 20050603
  Receipt Date: 20050204
  Transmission Date: 20051028
  Serious: Yes (Hospitalization, Disabling, Other)
  Sender: FDA-Public Use
  Company Number: US-MERCK-0502USA00677

PATIENT
  Age: 65 Year
  Sex: Male
  Weight: 106 kg

DRUGS (13)
  1. VIOXX [Suspect]
     Indication: ARTHRITIS
     Route: 048
     Dates: start: 19991217, end: 20011101
  2. VIOXX [Suspect]
     Route: 048
     Dates: end: 20040801
  3. PROZAC [Concomitant]
     Indication: DEPRESSION
     Route: 048
     Dates: start: 19950101
  4. LIPITOR [Concomitant]
     Indication: BLOOD CHOLESTEROL INCREASED
     Route: 048
     Dates: start: 19990701, end: 20040801
  5. GLUCOPHAGE [Concomitant]
     Indication: DIABETES MELLITUS
     Route: 048
  6. AMBIEN [Concomitant]
     Indication: INSOMNIA
     Route: 048
  7. COUMADIN [Concomitant]
     Indication: MYOCARDIAL INFARCTION
     Route: 048
     Dates: start: 19951001, end: 20040801
  8. COUMADIN [Concomitant]
     Indication: THROMBOSIS
     Route: 048
     Dates: start: 19951001, end: 20040801
  9. ATENOLOL [Concomitant]
     Indication: HYPERTENSION
     Route: 048
  10. ALLEGRA [Concomitant]
     Indication: HYPERSENSITIVITY
     Route: 065
  11. AMARYL [Concomitant]
     Indication: DIABETES MELLITUS
     Route: 065
  12. ASPIRIN [Concomitant]
     Indication: MYOCARDIAL INFARCTION
     Route: 065
  13. PAXIL [Concomitant]
     Route: 065
     Dates: start: 19950101

REACTIONS (39)
  - ANXIETY [None]
  - ARTHRALGIA [None]
  - ARTHROPATHY [None]
  - ASTHENIA [None]
  - ATHEROSCLEROSIS [None]
  - ATROPHY [None]
  - BALANCE DISORDER [None]
  - BUNDLE BRANCH BLOCK LEFT [None]
  - BURSA REMOVAL [None]
  - CAROTID ARTERY OCCLUSION [None]
  - CAROTID ARTERY STENOSIS [None]
  - CEREBROVASCULAR ACCIDENT [None]
  - CEREBROVASCULAR DISORDER [None]
  - CHEST DISCOMFORT [None]
  - CORONARY ARTERY DISEASE [None]
  - CORONARY ARTERY STENOSIS [None]
  - CORONARY OSTIAL STENOSIS [None]
  - DEPRESSION [None]
  - DYSPEPSIA [None]
  - DYSURIA [None]
  - EJECTION FRACTION DECREASED [None]
  - ELECTROCARDIOGRAM ST-T SEGMENT ABNORMAL [None]
  - EMOTIONAL DISTRESS [None]
  - FATIGUE [None]
  - GASTROOESOPHAGEAL REFLUX DISEASE [None]
  - HEADACHE [None]
  - HYPOACUSIS [None]
  - HYPOAESTHESIA ORAL [None]
  - ISCHAEMIC CEREBRAL INFARCTION [None]
  - JOINT INJURY [None]
  - LYMPHADENOPATHY [None]
  - MICROANGIOPATHY [None]
  - MUSCULOSKELETAL DISCOMFORT [None]
  - MYOCARDIAL ISCHAEMIA [None]
  - SCIATICA [None]
  - SUBDURAL HAEMATOMA [None]
  - THROMBOSIS [None]
  - VASCULAR GRAFT OCCLUSION [None]
  - VENTRICULAR HYPOKINESIA [None]
